FAERS Safety Report 6881883-2 (Version None)
Quarter: 2010Q3

REPORT INFORMATION
  Report Type: 
  Country: None (occurrence: None)
  Receive Date: 20100729
  Receipt Date: 20100721
  Transmission Date: 20110219
  Serious: Yes (Other)
  Sender: FDA-Public Use
  Company Number: AU-BAYER-201033693GPV

PATIENT
  Age: 38 Year
  Sex: Female

DRUGS (2)
  1. YAZ [Suspect]
     Indication: MENSTRUATION IRREGULAR
     Dates: start: 20100301, end: 20100714
  2. YAZ [Suspect]
     Dates: start: 20100318

REACTIONS (2)
  - DEAFNESS UNILATERAL [None]
  - TINNITUS [None]
